FAERS Safety Report 4365058-7 (Version None)
Quarter: 2004Q2

REPORT INFORMATION
  Report Type: 
  Country: None (occurrence: None)
  Receive Date: 20040521
  Receipt Date: 20040430
  Transmission Date: 20050107
  Serious: No
  Sender: FDA-Public Use
  Company Number: A06200400148

PATIENT
  Age: 48 Year
  Sex: Female

DRUGS (2)
  1. STILNOX - (ZOLPIDEM) - TABLET - 10 MG [Suspect]
     Dosage: 10 MG ONCE, ORAL
     Route: 048
     Dates: start: 20040418, end: 20040418
  2. CARVEDILOL [Concomitant]

REACTIONS (2)
  - AKINESIA [None]
  - APHASIA [None]
